FAERS Safety Report 16078451 (Version 1)
Quarter: 2019Q1

REPORT INFORMATION
  Report Type: Spontaneous
  Country: PL (occurrence: PL)
  Receive Date: 20190315
  Receipt Date: 20190315
  Transmission Date: 20190418
  Serious: Yes (Life-Threatening, Other)
  Sender: FDA-Public Use
  Company Number: PL-SA-2019SA071498

PATIENT
  Age: 75 Year
  Sex: Female

DRUGS (1)
  1. ARAVA [Suspect]
     Active Substance: LEFLUNOMIDE
     Indication: RHEUMATOID ARTHRITIS
     Dosage: 1X A DAY
     Route: 048
     Dates: start: 2015, end: 2018

REACTIONS (2)
  - Bladder injury [Recovering/Resolving]
  - Decreased appetite [Recovering/Resolving]
